FAERS Safety Report 22767088 (Version 2)
Quarter: 2023Q4

REPORT INFORMATION
  Report Type: Spontaneous
  Country: CL (occurrence: CL)
  Receive Date: 20230731
  Receipt Date: 20231130
  Transmission Date: 20240109
  Serious: Yes (Hospitalization, Other)
  Sender: FDA-Public Use
  Company Number: CL-PFIZER INC-PV202300130579

PATIENT
  Age: 57 Year
  Sex: Female

DRUGS (1)
  1. IBRANCE [Suspect]
     Active Substance: PALBOCICLIB
     Indication: Breast cancer metastatic
     Dosage: 125 MG, CYCLIC (DAILY)
     Route: 048

REACTIONS (5)
  - Pulmonary embolism [Unknown]
  - Erectile dysfunction [Unknown]
  - Arthralgia [Unknown]
  - Gait disturbance [Unknown]
  - Dry skin [Unknown]
